FAERS Safety Report 8572089-X (Version None)
Quarter: 2012Q3

REPORT INFORMATION
  Report Type: 
  Country: None (occurrence: None)
  Receive Date: 20120806
  Receipt Date: 20120803
  Transmission Date: 20120928
  Serious: Yes (Death, Hospitalization)
  Sender: FDA-Public Use
  Company Number: PHFR2012GB004193

PATIENT
  Sex: Male

DRUGS (2)
  1. CLOZARIL [Suspect]
     Indication: SCHIZOPHRENIA
     Dosage: UNK UKN, UNK
     Route: 048
     Dates: start: 20070816, end: 20120601
  2. CLOZARIL [Suspect]
     Route: 048

REACTIONS (3)
  - PSYCHOTIC DISORDER [None]
  - MALAISE [None]
  - COMPLETED SUICIDE [None]
